FAERS Safety Report 6381501-6 (Version None)
Quarter: 2009Q3

REPORT INFORMATION
  Report Type: 
  Country: None (occurrence: None)
  Receive Date: 20090924
  Receipt Date: 20090915
  Transmission Date: 20100115
  Serious: Yes (Other)
  Sender: FDA-Public Use
  Company Number: ADE# 09-121

PATIENT
  Sex: Female

DRUGS (1)
  1. TRAMADOL HYDROCHLORIDE [Suspect]
     Indication: MALAISE
     Dosage: FOUR TABLETS AT ONCE
     Dates: start: 20090817

REACTIONS (5)
  - DIZZINESS [None]
  - DYSPNOEA [None]
  - VERTIGO [None]
  - VISION BLURRED [None]
  - VOMITING [None]
